FAERS Safety Report 16574847 (Version 1)
Quarter: 2019Q3

REPORT INFORMATION
  Report Type: Spontaneous
  Country: US (occurrence: US)
  Receive Date: 20190715
  Receipt Date: 20190715
  Transmission Date: 20191004
  Serious: Yes (Other)
  Sender: FDA-Public Use
  Company Number: US-BEH-2019104089

PATIENT
  Age: 72 Year
  Sex: Female

DRUGS (2)
  1. BERINERT [Suspect]
     Active Substance: HUMAN C1-ESTERASE INHIBITOR
     Indication: HEREDITARY ANGIOEDEMA
     Dosage: 1350 INTERNATIONAL UNIT, PRN
     Route: 042
     Dates: start: 20120312
  2. BERINERT [Suspect]
     Active Substance: HUMAN C1-ESTERASE INHIBITOR
     Indication: HEREDITARY ANGIOEDEMA
     Dosage: 1350 INTERNATIONAL UNIT, PRN
     Route: 042
     Dates: start: 20120312

REACTIONS (2)
  - Central venous catheterisation [Unknown]
  - Spinal operation [Unknown]

NARRATIVE: CASE EVENT DATE: 20190628
